FAERS Safety Report 16824914 (Version 1)
Quarter: 2019Q3

REPORT INFORMATION
  Report Type: Spontaneous
  Country: JP (occurrence: JP)
  Receive Date: 20190918
  Receipt Date: 20190918
  Transmission Date: 20191005
  Serious: Yes (Hospitalization)
  Sender: FDA-Public Use
  Company Number: JP-ASTRAZENECA-2019SF30427

PATIENT
  Age: 66 Year
  Sex: Male

DRUGS (1)
  1. FASENRA [Suspect]
     Active Substance: BENRALIZUMAB
     Indication: ASTHMA
     Dosage: 30 MG, ONCE EVERY FOUR WEEKS IN THE FIRST TO THIRD DOSE, ONCE EVERY EIGHT WEEKS THEREAFTER
     Route: 058

REACTIONS (1)
  - Alveolar proteinosis [Unknown]

NARRATIVE: CASE EVENT DATE: 20190830
